FAERS Safety Report 5038236-1 (Version None)
Quarter: 2006Q2

REPORT INFORMATION
  Report Type: 
  Country: None (occurrence: None)
  Receive Date: 20060601
  Receipt Date: 20060125
  Transmission Date: 20061013
  Serious: No
  Sender: FDA-Public Use
  Company Number: 2006PV007621

PATIENT
  Age: 65 Year
  Sex: Male
  Weight: 108.8633 kg

DRUGS (4)
  1. BYETTA [Suspect]
     Indication: DIABETES MELLITUS NON-INSULIN-DEPENDENT
     Dosage: 5 MCG;QD;SC
     Route: 058
     Dates: start: 20060125
  2. AVANDIA [Concomitant]
  3. GLUCOVANCE [Concomitant]
  4. PRANDIN [Concomitant]

REACTIONS (1)
  - ACCIDENTAL NEEDLE STICK [None]
